FAERS Safety Report 9088392 (Version 1)
Quarter: 2013Q1

REPORT INFORMATION
  Report Type: Report from Study
  Country: US (occurrence: US)
  Receive Date: 20130218
  Receipt Date: 20130218
  Transmission Date: 20140127
  Serious: No
  Sender: FDA-Public Use
  Company Number: US-ABBOTT-13P-163-1046899-00

PATIENT
  Sex: Male

DRUGS (2)
  1. SIMCOR 1000/20 [Suspect]
     Indication: PRODUCT USED FOR UNKNOWN INDICATION
     Dosage: 1000/20MG AT BEDTIME
     Route: 048
     Dates: start: 201202
  2. ASA [Concomitant]
     Indication: PRODUCT USED FOR UNKNOWN INDICATION
     Dosage: AT BEDTIME
     Route: 048

REACTIONS (4)
  - Flushing [Unknown]
  - Erythema [Unknown]
  - Muscle spasms [Unknown]
  - Blood glucose increased [Unknown]
